FAERS Safety Report 6142472-0 (Version None)
Quarter: 2009Q2

REPORT INFORMATION
  Report Type: 
  Country: None (occurrence: None)
  Receive Date: 20090403
  Receipt Date: 20090327
  Transmission Date: 20091009
  Serious: Yes (Death, Hospitalization)
  Sender: FDA-Public Use
  Company Number: LU-BRISTOL-MYERS SQUIBB COMPANY-14566194

PATIENT
  Age: 66 Year
  Sex: Female

DRUGS (1)
  1. ERBITUX [Suspect]
     Indication: LUNG CANCER METASTATIC
     Route: 042
     Dates: start: 20090317, end: 20090317

REACTIONS (2)
  - CARDIAC FAILURE [None]
  - INFUSION RELATED REACTION [None]
